FAERS Safety Report 17884738 (Version 1)
Quarter: 2020Q2

REPORT INFORMATION
  Report Type: Spontaneous
  Country: US (occurrence: US)
  Receive Date: 20200611
  Receipt Date: 20200611
  Transmission Date: 20200714
  Serious: Yes (Other)
  Sender: FDA-Public Use
  Company Number: US-PFIZER INC-2019109461

PATIENT
  Age: 65 Year
  Sex: Female
  Weight: 89.81 kg

DRUGS (1)
  1. RAPAMUNE [Suspect]
     Active Substance: SIROLIMUS
     Indication: BONE MARROW TRANSPLANT
     Dosage: 1.5 MG, DAILY
     Route: 048

REACTIONS (4)
  - Renal disorder [Unknown]
  - Cardiac failure congestive [Unknown]
  - Product use in unapproved indication [Unknown]
  - Off label use [Unknown]
